FAERS Safety Report 8858928 (Version 2)
Quarter: 2013Q1

REPORT INFORMATION
  Report Type: Report from Study
  Country: JP (occurrence: JP)
  Receive Date: 20121024
  Receipt Date: 20130207
  Transmission Date: 20140127
  Serious: Yes (Hospitalization)
  Sender: FDA-Public Use
  Company Number: JP-009507513-1210JPN005513

PATIENT
  Age: 66 Year
  Sex: Female
  Weight: 63 kg

DRUGS (8)
  1. PEGINTRON [Suspect]
     Indication: CHRONIC HEPATITIS C
     Dosage: 1.2 MICROGRAM PER KILOGRAM, QW
     Route: 058
     Dates: start: 20120324
  2. PEGINTRON [Suspect]
     Dosage: 1.5 MICROGRAM PER KILOGRAM, QW
     Route: 058
     Dates: end: 20120623
  3. REBETOL [Suspect]
     Indication: CHRONIC HEPATITIS C
     Dosage: 400 MG, QD
     Route: 048
     Dates: start: 20120324, end: 20120427
  4. REBETOL [Suspect]
     Dosage: 200 MG, QD
     Route: 048
     Dates: start: 20120428, end: 20120627
  5. TELAVIC [Suspect]
     Indication: CHRONIC HEPATITIS C
     Dosage: 1500 MG, QD
     Route: 048
     Dates: start: 20120324, end: 20120413
  6. TELAVIC [Suspect]
     Dosage: 1000 MG,QD
     Route: 048
     Dates: start: 20120414, end: 20120616
  7. LOXONIN [Concomitant]
     Indication: PROPHYLAXIS
     Dosage: 160 MG/DAY, AS NEEDED, FORMULATION:POR
     Route: 048
     Dates: start: 20120324
  8. MUCOSTA [Concomitant]
     Indication: PROPHYLAXIS
     Dosage: 100 MG PER DAY, AS NEEDED, FORMULATION:POR
     Route: 048
     Dates: start: 20120324

REACTIONS (1)
  - Rhabdomyolysis [Recovered/Resolved]
